FAERS Safety Report 9449355 (Version 1)
Quarter: 2013Q3

REPORT INFORMATION
  Report Type: Report from Study
  Country: JP (occurrence: JP)
  Receive Date: 20130808
  Receipt Date: 20130808
  Transmission Date: 20140515
  Serious: Yes (Death, Other)
  Sender: FDA-Public Use
  Company Number: JP-ABBOTT-13X-087-1129246-00

PATIENT
  Age: 69 Year
  Sex: Male
  Weight: 43 kg

DRUGS (2)
  1. LIPACREON [Suspect]
     Indication: PANCREATIC INSUFFICIENCY
     Dosage: DAILY DOSE: 1800 MG; SACHET
     Route: 048
     Dates: start: 20120811, end: 20121130
  2. LANSOPRAZOLE [Concomitant]
     Indication: PANCREATICODUODENECTOMY
     Route: 048

REACTIONS (4)
  - Weight decreased [Fatal]
  - Protein total decreased [Fatal]
  - Blood albumin decreased [Fatal]
  - Diarrhoea [Unknown]
